FAERS Safety Report 12926674 (Version 2)
Quarter: 2016Q4

REPORT INFORMATION
  Report Type: Report from Study
  Country: None (occurrence: MX)
  Receive Date: 20161108
  Receipt Date: 20161202
  Transmission Date: 20170207
  Serious: Yes (Death)
  Sender: FDA-Public Use
  Company Number: MX-ABBVIE-16P-107-1773449-00

PATIENT
  Weight: 78.5 kg

DRUGS (1)
  1. VIEKIRA PAK [Suspect]
     Active Substance: DASABUVIR\OMBITASVIR\PARITAPREVIR\RITONAVIR
     Indication: CHRONIC HEPATITIS C
     Dosage: 2 IN MORNING; DASABUVIR 1 IN MORNING AND 1 AT NIGHT
     Route: 048
     Dates: start: 20151230

REACTIONS (5)
  - Splenectomy [Fatal]
  - Hepatic cirrhosis [Fatal]
  - Peritoneal haemorrhage [Fatal]
  - Strangulated umbilical hernia [Fatal]
  - Hypovolaemic shock [Fatal]
